FAERS Safety Report 16776956 (Version 2)
Quarter: 2019Q3

REPORT INFORMATION
  Report Type: Spontaneous
  Country: US (occurrence: US)
  Receive Date: 20190905
  Receipt Date: 20190905
  Transmission Date: 20191005
  Serious: No
  Sender: FDA-Public Use
  Company Number: PHEH2019US036093

PATIENT
  Sex: Female

DRUGS (3)
  1. TEGRETOL [Suspect]
     Active Substance: CARBAMAZEPINE
     Indication: PRODUCT USED FOR UNKNOWN INDICATION
     Route: 065
  2. LAMOTRIGINE. [Suspect]
     Active Substance: LAMOTRIGINE
     Indication: PRODUCT USED FOR UNKNOWN INDICATION
     Route: 065
  3. LATUDA [Suspect]
     Active Substance: LURASIDONE HYDROCHLORIDE
     Indication: BIPOLAR II DISORDER
     Dosage: UNK
     Route: 048
     Dates: end: 20190310

REACTIONS (10)
  - Anger [Unknown]
  - Anxiety [Unknown]
  - Confusional state [Unknown]
  - Rash generalised [Unknown]
  - Fear [Unknown]
  - Crying [Unknown]
  - Depression [Unknown]
  - Hypothyroidism [Unknown]
  - Personality change [Unknown]
  - Product use in unapproved indication [Unknown]
